FAERS Safety Report 8016012-5 (Version None)
Quarter: 2011Q4

REPORT INFORMATION
  Report Type: 
  Country: None (occurrence: None)
  Receive Date: 20111230
  Receipt Date: 20111230
  Transmission Date: 20120403
  Serious: Yes (Life-Threatening)
  Sender: FDA-Public Use
  Company Number: None

PATIENT
  Sex: Female
  Weight: 67.2 kg

DRUGS (1)
  1. AMIODARONE HCL [Suspect]
     Dosage: 150MG
     Route: 042

REACTIONS (6)
  - OXYGEN SATURATION DECREASED [None]
  - PULSELESS ELECTRICAL ACTIVITY [None]
  - PULSE ABNORMAL [None]
  - BRADYCARDIA [None]
  - CARDIAC ARREST [None]
  - HYPOTENSION [None]
